FAERS Safety Report 16033476 (Version 1)
Quarter: 2019Q1

REPORT INFORMATION
  Report Type: Spontaneous
  Country: US (occurrence: US)
  Receive Date: 20190305
  Receipt Date: 20190305
  Transmission Date: 20190418
  Serious: No
  Sender: FDA-Public Use
  Company Number: US-PRINSTON PHARMACEUTICAL INC.-2018PRN01701

PATIENT
  Sex: Male
  Weight: 87.98 kg

DRUGS (2)
  1. LEVETIRACETAM. [Suspect]
     Active Substance: LEVETIRACETAM
     Indication: SEIZURE
     Dosage: 500 MG, 2X/DAY
     Route: 048
     Dates: start: 2013
  2. 14 TOTAL MEDICATIONS (UNSPECIFIED) [Concomitant]

REACTIONS (3)
  - Fall [Recovered/Resolved]
  - Joint effusion [Recovering/Resolving]
  - Joint injury [Recovering/Resolving]
